FAERS Safety Report 11148479 (Version 3)
Quarter: 2017Q1

REPORT INFORMATION
  Report Type: Spontaneous
  Country: US (occurrence: US)
  Receive Date: 20150529
  Receipt Date: 20170330
  Transmission Date: 20170428
  Serious: Yes (Other)
  Sender: FDA-Public Use
  Company Number: US-ELI_LILLY_AND_COMPANY-US201505009554

PATIENT
  Age: 53 Year
  Sex: Female
  Weight: 95 kg

DRUGS (3)
  1. CYMBALTA [Suspect]
     Active Substance: DULOXETINE HYDROCHLORIDE
     Dosage: 60 MG, UNKNOWN
     Route: 048
  2. CYMBALTA [Suspect]
     Active Substance: DULOXETINE HYDROCHLORIDE
     Dosage: 30 MG, UNKNOWN
     Route: 048
  3. CYMBALTA [Suspect]
     Active Substance: DULOXETINE HYDROCHLORIDE
     Indication: FIBROMYALGIA
     Dosage: UNK UNK, UNKNOWN
     Route: 048
     Dates: start: 20120223

REACTIONS (25)
  - Lethargy [Unknown]
  - Memory impairment [Unknown]
  - Irritability [Unknown]
  - Dizziness [Unknown]
  - Nightmare [Unknown]
  - Vertigo [Unknown]
  - Paraesthesia [Unknown]
  - Nausea [Unknown]
  - Sensory disturbance [Unknown]
  - Agitation [Unknown]
  - Affect lability [Unknown]
  - Headache [Unknown]
  - Drug withdrawal syndrome [Unknown]
  - Impaired driving ability [Unknown]
  - Diarrhoea [Unknown]
  - Mood swings [Unknown]
  - Vision blurred [Unknown]
  - Sleep disorder [Unknown]
  - Confusional state [Unknown]
  - Fatigue [Unknown]
  - Vomiting [Unknown]
  - Anxiety [Unknown]
  - Insomnia [Unknown]
  - Dysphoria [Unknown]
  - Hyperhidrosis [Unknown]

NARRATIVE: CASE EVENT DATE: 20130614
